FAERS Safety Report 4381936-7 (Version None)
Quarter: 2004Q2

REPORT INFORMATION
  Report Type: 
  Country: None (occurrence: None)
  Receive Date: 20040615
  Receipt Date: 20040601
  Transmission Date: 20050107
  Serious: Yes (Death)
  Sender: FDA-Public Use
  Company Number: MK200406-0010-1

PATIENT
  Age: 24 Year
  Sex: Female

DRUGS (1)
  1. IMIPRAMINE HCL [Suspect]

REACTIONS (6)
  - ASPHYXIA [None]
  - DRUG TOXICITY [None]
  - PETECHIAE [None]
  - RESPIRATORY DISORDER [None]
  - RESPIRATORY TRACT CONGESTION [None]
  - URINE ABNORMALITY [None]
